FAERS Safety Report 5635535-7 (Version None)
Quarter: 2008Q1

REPORT INFORMATION
  Report Type: 
  Country: None (occurrence: None)
  Receive Date: 20080222
  Receipt Date: 20080212
  Transmission Date: 20080703
  Serious: Yes (Other)
  Sender: FDA-Public Use
  Company Number: BE-PFIZER INC-2008014379

PATIENT
  Sex: Female

DRUGS (1)
  1. CHANTIX [Suspect]
     Indication: SMOKING CESSATION THERAPY

REACTIONS (5)
  - CONFUSIONAL STATE [None]
  - EPISTAXIS [None]
  - MUSCLE SPASMS [None]
  - PARAESTHESIA [None]
  - PARALYSIS [None]
